FAERS Safety Report 6993164-7 (Version None)
Quarter: 2010Q3

REPORT INFORMATION
  Report Type: 
  Country: None (occurrence: None)
  Receive Date: 20100917
  Receipt Date: 20100517
  Transmission Date: 20110219
  Serious: Yes (Hospitalization, Other)
  Sender: FDA-Public Use
  Company Number: US-ASTRAZENECA-2009UW13291

PATIENT
  Age: 472 Month
  Sex: Female
  Weight: 56.7 kg

DRUGS (13)
  1. SEROQUEL [Suspect]
     Indication: SCHIZOPHRENIA
     Route: 048
     Dates: start: 20020701, end: 20030815
  2. SEROQUEL [Suspect]
     Route: 048
     Dates: start: 20031101
  3. SEROQUEL [Suspect]
     Route: 048
     Dates: start: 20040101
  4. ZYPREXA [Suspect]
     Indication: SCHIZOPHRENIA
     Route: 048
     Dates: start: 20020701, end: 20030701
  5. RISPERDAL [Concomitant]
     Indication: SCHIZOPHRENIA
     Dates: start: 20040501, end: 20040801
  6. HALDOL [Concomitant]
     Dates: start: 20031101
  7. HALDOL [Concomitant]
     Dates: start: 20070501, end: 20070601
  8. STELAZINE [Concomitant]
     Dates: start: 19900730, end: 20081101
  9. WELLBUTRIN [Concomitant]
     Indication: DEPRESSION
  10. DEPAKOTE [Concomitant]
     Dosage: 250 MG QAM AND 500 MG QHS
     Route: 048
     Dates: start: 20030501
  11. BUSPAR [Concomitant]
     Dates: start: 20030501
  12. BUSPAR [Concomitant]
     Dates: start: 20031101
  13. COGENTIN [Concomitant]
     Dates: start: 20031101

REACTIONS (4)
  - DIABETES MELLITUS [None]
  - DIABETIC KETOACIDOSIS [None]
  - OBESITY [None]
  - TYPE 2 DIABETES MELLITUS [None]
